FAERS Safety Report 12556428 (Version 1)
Quarter: 2016Q3

REPORT INFORMATION
  Report Type: Spontaneous
  Country: US (occurrence: None)
  Receive Date: 20160713
  Receipt Date: 20160713
  Transmission Date: 20161109
  Serious: Yes (Hospitalization, Other)
  Sender: FDA-Public Use
  Company Number: None

PATIENT
  Age: 5 Year
  Sex: Male

DRUGS (2)
  1. PURE SUN DEFENSE NICKEOLDEON NINJA TURTLES SUNSCREEN SPRAY [Suspect]
     Active Substance: AVOBENZONE\HOMOSALATE\OCTISALATE\OCTOCRYLENE\OXYBENZONE
     Indication: SUNBURN
     Dosage: 50SPF  6 FL OZ AS NEEDED ON SKIN
     Route: 061
     Dates: start: 20160605, end: 20160605
  2. PURE SUN DEFENSE NICKEOLDEON NINJA TURTLES SUNSCREEN SPRAY [Suspect]
     Active Substance: AVOBENZONE\HOMOSALATE\OCTISALATE\OCTOCRYLENE\OXYBENZONE
     Indication: PROPHYLAXIS
     Dosage: 50SPF  6 FL OZ AS NEEDED ON SKIN
     Route: 061
     Dates: start: 20160605, end: 20160605

REACTIONS (4)
  - Application site burn [None]
  - Burn infection [None]
  - Chemical injury [None]
  - Application site vesicles [None]

NARRATIVE: CASE EVENT DATE: 20160605
